FAERS Safety Report 11823734 (Version 1)
Quarter: 2015Q4

REPORT INFORMATION
  Report Type: Spontaneous
  Country: US (occurrence: US)
  Receive Date: 20151210
  Receipt Date: 20151210
  Transmission Date: 20160305
  Serious: No
  Sender: FDA-Public Use
  Company Number: US-BAYER-2015-480914

PATIENT
  Age: 2 Year
  Sex: Male
  Weight: 14.06 kg

DRUGS (1)
  1. CHILDREN CLARITIN ALLERGY [Suspect]
     Active Substance: LORATADINE
     Indication: GASTROOESOPHAGEAL REFLUX DISEASE
     Dosage: 1 TSP, QD

REACTIONS (4)
  - Mass [Not Recovered/Not Resolved]
  - Rash generalised [Recovering/Resolving]
  - Rash vesicular [Unknown]
  - Product use issue [Unknown]
